FAERS Safety Report 24289767 (Version 1)
Quarter: 2024Q3

REPORT INFORMATION
  Report Type: Spontaneous
  Country: GB (occurrence: GB)
  Receive Date: 20240906
  Receipt Date: 20240906
  Transmission Date: 20241016
  Serious: Yes (Disabling, Other)
  Sender: ALKEM
  Company Number: None

PATIENT
  Age: 24 Year
  Sex: Male
  Weight: 89 kg

DRUGS (2)
  1. PREGABALIN [Suspect]
     Active Substance: PREGABALIN
     Indication: Epilepsy
     Dosage: 525 MILLIGRAM, QD (FROM MEDICAL NOTES DEC 2007)
     Route: 065
     Dates: start: 20061015, end: 20071215
  2. PREGABALIN [Suspect]
     Active Substance: PREGABALIN
     Dosage: UNK (DOSE INCREASED)
     Route: 065

REACTIONS (10)
  - Exophthalmos [Recovered/Resolved with Sequelae]
  - Mydriasis [Recovered/Resolved with Sequelae]
  - Medication error [Unknown]
  - Withdrawal syndrome [Unknown]
  - Dry skin [Unknown]
  - Disturbance in attention [Unknown]
  - Dysarthria [Unknown]
  - Fatigue [Unknown]
  - Tremor [Unknown]
  - Weight increased [Unknown]

NARRATIVE: CASE EVENT DATE: 20061015
